FAERS Safety Report 8621320-0 (Version None)
Quarter: 2012Q3

REPORT INFORMATION
  Report Type: 
  Country: None (occurrence: None)
  Receive Date: 20120824
  Receipt Date: 20120820
  Transmission Date: 20120928
  Serious: Yes (Life-Threatening)
  Sender: FDA-Public Use
  Company Number: GB-PFIZER INC-2012203163

PATIENT
  Age: 59 Year
  Sex: Female
  Weight: 81.9 kg

DRUGS (4)
  1. ACETAMINOPHEN AND CODEINE PHOSPHATE [Concomitant]
     Indication: ARTHRALGIA
     Dosage: 4 TABLETS A DAY
  2. SULFASALAZINE [Suspect]
     Indication: PSORIATIC ARTHROPATHY
     Dosage: 1.5 G, 1X/DAY
     Route: 048
     Dates: start: 20120616, end: 20120704
  3. OMEPRAZOLE [Concomitant]
     Indication: GASTROINTESTINAL DISORDER
     Dosage: UNK
     Dates: start: 20080609
  4. NAPROXEN [Concomitant]
     Indication: ARTHRALGIA
     Dosage: 500 MG, 2X/DAY
     Dates: start: 20080619

REACTIONS (5)
  - RASH GENERALISED [None]
  - DYSPHAGIA [None]
  - LOCAL SWELLING [None]
  - SWELLING FACE [None]
  - DYSPNOEA [None]
